FAERS Safety Report 25504550 (Version 2)
Quarter: 2025Q3

REPORT INFORMATION
  Report Type: Spontaneous
  Country: US (occurrence: US)
  Receive Date: 20250702
  Receipt Date: 20250808
  Transmission Date: 20251021
  Serious: No
  Sender: JOHNSON AND JOHNSON
  Company Number: US-JNJFOC-20250700817

PATIENT
  Age: 80 Year

DRUGS (1)
  1. TREMFYA [Suspect]
     Active Substance: GUSELKUMAB
     Indication: Crohn^s disease
     Route: 058

REACTIONS (4)
  - Device malfunction [Unknown]
  - Device deployment issue [Unknown]
  - Product dose omission issue [Unknown]
  - Irritability [Unknown]

NARRATIVE: CASE EVENT DATE: 20250626
